FAERS Safety Report 4719381-4 (Version None)
Quarter: 2005Q3

REPORT INFORMATION
  Report Type: 
  Country: None (occurrence: None)
  Receive Date: 20050719
  Receipt Date: 20050719
  Transmission Date: 20060218
  Serious: Yes (Hospitalization, Disabling)
  Sender: FDA-Public Use
  Company Number: None

PATIENT
  Age: 78 Year
  Sex: Male

DRUGS (18)
  1. DARBOPOETIN [Suspect]
     Indication: ANAEMIA
     Dosage: 60MG SC QWEEK
     Route: 058
     Dates: start: 20050325, end: 20050409
  2. DARBOPOETIN [Suspect]
     Indication: RENAL DISORDER
     Dosage: 60MG SC QWEEK
     Route: 058
     Dates: start: 20050325, end: 20050409
  3. ACETAMINOPHEN [Concomitant]
  4. ALBUTEROL [Concomitant]
  5. ATROVENT [Concomitant]
  6. CALCIUM CARBONATE [Concomitant]
  7. DARBEPOETIN [Concomitant]
  8. DILTIAZEM SUSTAINED RELEASE [Concomitant]
  9. DOCUSATE [Concomitant]
  10. IRON SULFATETHIAMIN COMPOUND TAB [Concomitant]
  11. AEROBID [Concomitant]
  12. LASIX [Concomitant]
  13. ISOSORBIDE DINITRATE [Concomitant]
  14. NITROGLYCERIN [Concomitant]
  15. OMEPRAZOLE [Concomitant]
  16. SIMVASTATIN [Concomitant]
  17. TERAZOSIN HCL [Concomitant]
  18. PREDNISONE [Concomitant]

REACTIONS (3)
  - CHEST PAIN [None]
  - DRUG HYPERSENSITIVITY [None]
  - RASH PRURITIC [None]
